FAERS Safety Report 22116073 (Version 1)
Quarter: 2023Q1

REPORT INFORMATION
  Report Type: Spontaneous
  Country: US (occurrence: US)
  Receive Date: 20230320
  Receipt Date: 20230320
  Transmission Date: 20230417
  Serious: No
  Sender: FDA-Public Use
  Company Number: US-TEVA-2022-US-2028026

PATIENT
  Sex: Female

DRUGS (1)
  1. OXYBUTYNIN [Suspect]
     Active Substance: OXYBUTYNIN
     Indication: Urinary incontinence
     Route: 065

REACTIONS (4)
  - Chapped lips [Unknown]
  - Incontinence [Unknown]
  - Dry mouth [Unknown]
  - Drug ineffective [Unknown]
